FAERS Safety Report 7102933-4 (Version None)
Quarter: 2010Q4

REPORT INFORMATION
  Report Type: 
  Country: None (occurrence: None)
  Receive Date: 20101115
  Receipt Date: 20090615
  Transmission Date: 20110411
  Serious: No
  Sender: FDA-Public Use
  Company Number: US-KINGPHARMUSA00001-K200900710

PATIENT
  Sex: Female

DRUGS (10)
  1. CYTOMEL [Suspect]
     Dosage: 12.5 MCG, QD
  2. PAXIL [Suspect]
     Indication: DEPRESSION
     Dosage: UNK
     Route: 048
     Dates: start: 19980101, end: 20000101
  3. LITHIUM [Suspect]
  4. NEFAZODONE HYDROCHLORIDE [Suspect]
  5. GABAPENTIN [Suspect]
  6. LORAZEPAM [Suspect]
  7. VALPROATE SEMISODIUM [Suspect]
  8. SYNTHROID [Suspect]
  9. VENLAFAXINE HYDROCHLORIDE [Suspect]
  10. LEVOTHYROXINE SODIUM [Concomitant]

REACTIONS (2)
  - UNEVALUABLE EVENT [None]
  - WEIGHT INCREASED [None]
